FAERS Safety Report 18655134 (Version 1)
Quarter: 2020Q4

REPORT INFORMATION
  Report Type: Spontaneous
  Country: DE (occurrence: DE)
  Receive Date: 20201223
  Receipt Date: 20201223
  Transmission Date: 20210114
  Serious: Yes (Hospitalization, Other)
  Sender: FDA-Public Use
  Company Number: NVSC2020DE337118

PATIENT
  Age: 65 Year
  Sex: Male
  Weight: 134 kg

DRUGS (32)
  1. VALSARTAN - 1 A PHARMA 160 MG FILMTABLETTEN [Suspect]
     Active Substance: VALSARTAN
     Indication: PRODUCT USED FOR UNKNOWN INDICATION
     Dosage: 160 MG
     Route: 065
     Dates: start: 201608, end: 201803
  2. TILIDIN [Concomitant]
     Active Substance: NALOXONE HYDROCHLORIDE\TILIDINE HYDROCHLORIDE
     Indication: PRODUCT USED FOR UNKNOWN INDICATION
     Dosage: 100 DF, (1-1-0-2), INCREASED, 50/4 RETARD 1A PHA RET, N3
     Route: 065
  3. EMPAGLIFLOZIN [Concomitant]
     Active Substance: EMPAGLIFLOZIN
     Indication: PRODUCT USED FOR UNKNOWN INDICATION
     Dosage: UNK, QD (1-0-0-0), IN MORNING
     Route: 065
  4. CARVEDILOL. [Concomitant]
     Active Substance: CARVEDILOL
     Indication: PRODUCT USED FOR UNKNOWN INDICATION
     Route: 065
  5. SPASMEX [Concomitant]
     Indication: MICTURITION URGENCY
     Dosage: 30 MG
     Route: 065
     Dates: start: 201506
  6. LEUPRONE [Suspect]
     Active Substance: LEUPROLIDE ACETATE
     Indication: PROSTATE CANCER
     Dosage: UNK
     Route: 058
     Dates: start: 20120924, end: 20120924
  7. VALSARTAN DURA [Suspect]
     Active Substance: VALSARTAN
     Indication: HYPERTENSION
     Dosage: 1 DF, QD
     Route: 048
     Dates: start: 20180723
  8. TAMSULOSIN [Concomitant]
     Active Substance: TAMSULOSIN
     Indication: PROSTATE CANCER
     Dosage: 0.4 MG, QD, IN MORNING
     Route: 048
     Dates: start: 2015
  9. LANTUS [Concomitant]
     Active Substance: INSULIN GLARGINE
     Indication: PRODUCT USED FOR UNKNOWN INDICATION
     Dosage: UNK, PRE-FILLED PEN, LIPROLOG ACCORDING TO VALUE
     Route: 065
  10. VALSARTAN BASICS [Concomitant]
     Indication: PRODUCT USED FOR UNKNOWN INDICATION
     Dosage: UNK, QD, (1-0-0-0), IN MORNING
     Route: 065
  11. LIXIANA [Concomitant]
     Active Substance: EDOXABAN TOSYLATE
     Indication: PRODUCT USED FOR UNKNOWN INDICATION
     Dosage: UNK, QD, (0-1-0-0), IN AFTERNOON
     Route: 065
  12. VALSARTAN. [Suspect]
     Active Substance: VALSARTAN
     Dosage: 160 MG
     Route: 065
     Dates: start: 201906, end: 201910
  13. METOPROLOL. [Concomitant]
     Active Substance: METOPROLOL
     Indication: PRODUCT USED FOR UNKNOWN INDICATION
     Dosage: UNK, QD, (1-0-0-0), IN MORNING
     Route: 065
  14. METFORMIN [Concomitant]
     Active Substance: METFORMIN HYDROCHLORIDE
     Indication: PRODUCT USED FOR UNKNOWN INDICATION
     Dosage: UNK, BID, (1-0-1-0), 1 TAB IN MORNING, 1 TAB IN EVENING
     Route: 065
  15. LEUPRONE [Suspect]
     Active Substance: LEUPROLIDE ACETATE
     Dosage: UNK
     Route: 058
     Dates: start: 20121218, end: 20121218
  16. LEUPRONE [Suspect]
     Active Substance: LEUPROLIDE ACETATE
     Dosage: UNK
     Route: 058
     Dates: start: 20130618, end: 20130618
  17. LEUPRONE [Suspect]
     Active Substance: LEUPROLIDE ACETATE
     Dosage: UNK
     Route: 058
     Dates: start: 20140414, end: 20140414
  18. SIMVA ARISTO [Concomitant]
     Active Substance: SIMVASTATIN
     Indication: PRODUCT USED FOR UNKNOWN INDICATION
     Dosage: UNK, QD, (0-0-1-0), IN THE EVENING
     Route: 065
  19. LEUPRONE [Suspect]
     Active Substance: LEUPROLIDE ACETATE
     Dosage: UNK
     Route: 058
     Dates: start: 20130113, end: 20130113
  20. ASS 1 A PHARMA [Concomitant]
     Active Substance: ASPIRIN
     Indication: PRODUCT USED FOR UNKNOWN INDICATION
     Dosage: UNK
     Route: 065
  21. DOXYCYCLINE. [Concomitant]
     Active Substance: DOXYCYCLINE
     Indication: PRODUCT USED FOR UNKNOWN INDICATION
     Dosage: 1X100, 2X
     Route: 065
     Dates: start: 20121115
  22. URIVESC [Concomitant]
     Active Substance: TROSPIUM CHLORIDE
     Indication: MICTURITION URGENCY
     Dosage: UNK
     Route: 065
  23. MICTONORM UNO [Concomitant]
     Indication: PRODUCT USED FOR UNKNOWN INDICATION
     Dosage: 300 MG
     Route: 065
  24. VALSARTAN. [Suspect]
     Active Substance: VALSARTAN
     Indication: PRODUCT USED FOR UNKNOWN INDICATION
     Dosage: 1 DF, QD (160 MG), IN MORNING
     Route: 065
     Dates: start: 20140203
  25. VALSARTAN. [Suspect]
     Active Substance: VALSARTAN
     Dosage: 160 MG
     Route: 065
     Dates: start: 201902
  26. VALSARTAN. [Suspect]
     Active Substance: VALSARTAN
     Dosage: 80 MG
     Route: 065
     Dates: start: 201904
  27. VALSARTAN - 1 A PHARMA 160 MG FILMTABLETTEN [Suspect]
     Active Substance: VALSARTAN
     Dosage: 160 MG
     Route: 065
     Dates: start: 201805, end: 201807
  28. TORASEMID-1A PHARMA [Concomitant]
     Active Substance: TORSEMIDE
     Indication: PRODUCT USED FOR UNKNOWN INDICATION
     Dosage: UNK, QD, (1-0-0-0), IN MORNING
     Route: 065
  29. VALSARTAN. [Suspect]
     Active Substance: VALSARTAN
     Dosage: 160 MG
     Route: 065
     Dates: start: 201807, end: 201810
  30. VALSARTAN HEXAL 80 MG FILMTABLETTEN [Suspect]
     Active Substance: VALSARTAN
     Indication: PRODUCT USED FOR UNKNOWN INDICATION
     Dosage: 80 MG
     Route: 065
     Dates: start: 201402, end: 201411
  31. LEUPRONE [Suspect]
     Active Substance: LEUPROLIDE ACETATE
     Dosage: UNK
     Route: 058
     Dates: start: 20130319, end: 20130319
  32. VALSACOR [Suspect]
     Active Substance: VALSARTAN
     Indication: PRODUCT USED FOR UNKNOWN INDICATION
     Dosage: 160 MG
     Route: 065
     Dates: start: 201411, end: 201604

REACTIONS (39)
  - Urinary tract infection bacterial [Recovering/Resolving]
  - Back pain [Not Recovered/Not Resolved]
  - Headache [Recovered/Resolved]
  - Stress urinary incontinence [Unknown]
  - Sacroiliac joint dysfunction [Unknown]
  - Dysuria [Unknown]
  - Fatigue [Not Recovered/Not Resolved]
  - Arthralgia [Unknown]
  - Loss of libido [Unknown]
  - Osteoarthritis [Unknown]
  - Hypoaesthesia [Unknown]
  - Malaise [Unknown]
  - Dizziness [Unknown]
  - Plantar fasciitis [Unknown]
  - Quality of life decreased [Recovered/Resolved]
  - Leukocyturia [Unknown]
  - Diabetes mellitus [Unknown]
  - Erectile dysfunction [Unknown]
  - Emotional distress [Recovered/Resolved]
  - Gastrointestinal disorder [Recovered/Resolved]
  - Haematoma [Unknown]
  - Fall [Unknown]
  - Arthralgia [Recovered/Resolved]
  - Balanoposthitis [Unknown]
  - Glycosylated haemoglobin increased [Unknown]
  - Phimosis [Unknown]
  - Renal cyst [Unknown]
  - Herpes zoster [Unknown]
  - Urine flow decreased [Unknown]
  - Blood glucose abnormal [Unknown]
  - Groin pain [Unknown]
  - Peripheral coldness [Unknown]
  - Restlessness [Unknown]
  - Nausea [Unknown]
  - Incontinence [Unknown]
  - Flank pain [Unknown]
  - Pruritus [Unknown]
  - Pain in extremity [Unknown]
  - Pollakiuria [Unknown]

NARRATIVE: CASE EVENT DATE: 20140414
